FAERS Safety Report 4765198-4 (Version None)
Quarter: 2005Q3

REPORT INFORMATION
  Report Type: 
  Country: None (occurrence: None)
  Receive Date: 20050906
  Receipt Date: 20050823
  Transmission Date: 20060218
  Serious: Yes (Hospitalization, Other)
  Sender: FDA-Public Use
  Company Number: 2005119699

PATIENT
  Age: 53 Year
  Sex: Female
  Weight: 74.8435 kg

DRUGS (2)
  1. XANAX [Suspect]
     Indication: PANIC ATTACK
     Dosage: 1.5 MG (0.5 MG, 3 IN 1 D), ORAL
     Route: 048
     Dates: start: 19900101
  2. PRILOSEC [Concomitant]

REACTIONS (3)
  - CEREBROVASCULAR ACCIDENT [None]
  - MYOCARDIAL INFARCTION [None]
  - SJOGREN'S SYNDROME [None]
